FAERS Safety Report 9515066 (Version 1)
Quarter: 2013Q3

REPORT INFORMATION
  Report Type: Report from Study
  Country: US (occurrence: US)
  Receive Date: 20130911
  Receipt Date: 20130911
  Transmission Date: 20140515
  Serious: Yes (Other)
  Sender: FDA-Public Use
  Company Number: US-JNJFOC-20130901020

PATIENT
  Sex: Female
  Weight: 74.84 kg

DRUGS (2)
  1. REMICADE [Suspect]
     Indication: CROHN^S DISEASE
     Dosage: ABOUT 5 YEARS AGO
     Route: 042
     Dates: start: 2008
  2. ASACOL [Concomitant]
     Route: 048

REACTIONS (2)
  - Thyroid mass [Recovered/Resolved]
  - Osteoporosis [Not Recovered/Not Resolved]
